FAERS Safety Report 17908229 (Version 1)
Quarter: 2020Q2

REPORT INFORMATION
  Report Type: Other
  Country: CA (occurrence: CA)
  Receive Date: 20200617
  Receipt Date: 20200617
  Transmission Date: 20200714
  Serious: Yes (Other)
  Sender: FDA-Public Use
  Company Number: CA-BECTON DICKINSON-2020BDN00161

PATIENT
  Age: 61 Year
  Sex: Male
  Weight: 78 kg

DRUGS (12)
  1. FOLIC ACID. [Concomitant]
     Active Substance: FOLIC ACID
  2. FUROSEMIDE. [Concomitant]
     Active Substance: FUROSEMIDE
  3. EPOPROSTENOL. [Suspect]
     Active Substance: EPOPROSTENOL
     Dosage: 4.5 MG, 1X/DAY
  4. ELTROXIN [Concomitant]
     Active Substance: LEVOTHYROXINE
  5. CHLORHEXIDINE [Suspect]
     Active Substance: CHLORHEXIDINE
  6. EPOPROSTENOL. [Suspect]
     Active Substance: EPOPROSTENOL
     Dosage: 4.5 MG, 1X/DAY
     Route: 042
  7. CITALOPRAM [Concomitant]
     Active Substance: CITALOPRAM HYDROBROMIDE
  8. OMEPRAZOLE. [Concomitant]
     Active Substance: OMEPRAZOLE
  9. EPOPROSTENOL. [Suspect]
     Active Substance: EPOPROSTENOL
     Indication: PULMONARY ARTERIAL HYPERTENSION
     Dosage: 3 MG, 1X/DAY
  10. VITAMIN D [Concomitant]
     Active Substance: VITAMIN D NOS
  11. WARFARIN [Concomitant]
     Active Substance: WARFARIN
  12. ADCIRCA [Suspect]
     Active Substance: TADALAFIL

REACTIONS (10)
  - Feeling abnormal [Not Recovered/Not Resolved]
  - Chest pain [Not Recovered/Not Resolved]
  - Drug hypersensitivity [Not Recovered/Not Resolved]
  - Pain in extremity [Not Recovered/Not Resolved]
  - Nausea [Not Recovered/Not Resolved]
  - Asthenia [Not Recovered/Not Resolved]
  - Cardiomegaly [Not Recovered/Not Resolved]
  - Abdominal pain [Not Recovered/Not Resolved]
  - Headache [Not Recovered/Not Resolved]
  - Arthralgia [Not Recovered/Not Resolved]
